APPROVED DRUG PRODUCT: DRONABINOL
Active Ingredient: DRONABINOL
Strength: 5MG
Dosage Form/Route: CAPSULE;ORAL
Application: A207421 | Product #002 | TE Code: AB
Applicant: ASCENT PHARMACEUTICALS INC
Approved: Feb 7, 2020 | RLD: No | RS: No | Type: RX